FAERS Safety Report 9559803 (Version 1)
Quarter: 2013Q3

REPORT INFORMATION
  Report Type: Spontaneous
  Country: US (occurrence: US)
  Receive Date: 20130927
  Receipt Date: 20130927
  Transmission Date: 20140515
  Serious: Yes (Other)
  Sender: FDA-Public Use
  Company Number: US-PFIZER INC-2013277499

PATIENT
  Age: 61 Year
  Sex: Female

DRUGS (5)
  1. ENBREL [Suspect]
     Indication: ANKYLOSING SPONDYLITIS
     Dosage: 50 MG, QWK
     Route: 065
     Dates: start: 2002
  2. METHOTREXATE SODIUM [Suspect]
     Dosage: UNK
     Route: 065
  3. REMICAIDE [Suspect]
     Dosage: UNK
     Route: 065
  4. PREDNISONE [Suspect]
     Dosage: UNK
     Route: 065
  5. IMURAN [Concomitant]
     Dosage: UNK

REACTIONS (21)
  - Glaucoma [Recovered/Resolved]
  - Diabetes mellitus [Not Recovered/Not Resolved]
  - Personality change [Recovered/Resolved]
  - Cataract [Not Recovered/Not Resolved]
  - Visual impairment [Recovered/Resolved]
  - Tendon rupture [Not Recovered/Not Resolved]
  - Sinusitis [Recovered/Resolved]
  - Pain [Not Recovered/Not Resolved]
  - Pain in extremity [Not Recovered/Not Resolved]
  - Mobility decreased [Not Recovered/Not Resolved]
  - Musculoskeletal pain [Not Recovered/Not Resolved]
  - Arthralgia [Not Recovered/Not Resolved]
  - Gait disturbance [Not Recovered/Not Resolved]
  - Insomnia [Not Recovered/Not Resolved]
  - Nausea [Recovered/Resolved]
  - Somnolence [Recovered/Resolved]
  - Fatigue [Not Recovered/Not Resolved]
  - Paraesthesia [Not Recovered/Not Resolved]
  - Injection site swelling [Recovered/Resolved]
  - Injection site warmth [Recovered/Resolved]
  - Injection site erythema [Recovered/Resolved]
